FAERS Safety Report 12958528 (Version 1)
Quarter: 2016Q4

REPORT INFORMATION
  Report Type: Spontaneous
  Country: US (occurrence: US)
  Receive Date: 20161121
  Receipt Date: 20161121
  Transmission Date: 20170207
  Serious: No
  Sender: FDA-Public Use
  Company Number: US-TEVA-690045USA

PATIENT
  Age: 19 Year
  Sex: Female
  Weight: 67.19 kg

DRUGS (1)
  1. CRYSELLE [Suspect]
     Active Substance: ETHINYL ESTRADIOL\NORGESTREL
     Indication: MENSTRUATION IRREGULAR
     Dosage: 0.3MG/ 0.03 MG
     Route: 065
     Dates: start: 20160717

REACTIONS (1)
  - Polymenorrhoea [Unknown]

NARRATIVE: CASE EVENT DATE: 20160803
